FAERS Safety Report 21948210 (Version 1)
Quarter: 2023Q1

REPORT INFORMATION
  Report Type: Spontaneous
  Country: US (occurrence: US)
  Receive Date: 20230203
  Receipt Date: 20230203
  Transmission Date: 20230417
  Serious: Yes (Other)
  Sender: FDA-Public Use
  Company Number: US-TEVA-2023-US-2850414

PATIENT
  Age: 55 Year
  Sex: Male

DRUGS (1)
  1. COPAXONE [Suspect]
     Active Substance: GLATIRAMER ACETATE
     Indication: Product used for unknown indication
     Dosage: 20 MG/ML, PFS 3 TIMES A WEEK
     Route: 065
     Dates: start: 2002, end: 2008

REACTIONS (6)
  - Multiple sclerosis relapse [Unknown]
  - Muscular weakness [Unknown]
  - Gait inability [Unknown]
  - Speech disorder [Unknown]
  - Inappropriate schedule of product administration [Unknown]
  - Device ineffective [Unknown]
